FAERS Safety Report 7647737-9 (Version None)
Quarter: 2011Q3

REPORT INFORMATION
  Report Type: 
  Country: None (occurrence: None)
  Receive Date: 20110801
  Receipt Date: 20110801
  Transmission Date: 20111222
  Serious: Yes (Other)
  Sender: FDA-Public Use
  Company Number: None

PATIENT
  Age: 54 Year
  Sex: Female
  Weight: 158.75 kg

DRUGS (1)
  1. HYDROCHLOROTHIAZIDE [Suspect]
     Indication: HYPERTENSION
     Dosage: 1 TABLET 25 MG
     Route: 048
     Dates: start: 20110624, end: 20110731

REACTIONS (7)
  - FAECES HARD [None]
  - HAEMATOCHEZIA [None]
  - HEADACHE [None]
  - DIZZINESS [None]
  - PALPITATIONS [None]
  - HAEMORRHAGE [None]
  - ABDOMINAL DISCOMFORT [None]
